FAERS Safety Report 5213715-2 (Version None)
Quarter: 2007Q1

REPORT INFORMATION
  Report Type: 
  Country: None (occurrence: None)
  Receive Date: 20070119
  Receipt Date: 20070109
  Transmission Date: 20070707
  Serious: Yes (Life-Threatening)
  Sender: FDA-Public Use
  Company Number: JP-PFIZER INC-2007003079

PATIENT
  Age: 54 Year
  Sex: Female

DRUGS (1)
  1. ZITHROMAC [Suspect]
     Indication: UPPER RESPIRATORY TRACT INFLAMMATION
     Dosage: DAILY DOSE:500MG
     Route: 048
     Dates: start: 20061231, end: 20061231

REACTIONS (1)
  - DISSEMINATED INTRAVASCULAR COAGULATION [None]
